FAERS Safety Report 5691648-5 (Version None)
Quarter: 2008Q1

REPORT INFORMATION
  Report Type: 
  Country: None (occurrence: None)
  Receive Date: 20080331
  Receipt Date: 20080321
  Transmission Date: 20080703
  Serious: Yes (Hospitalization)
  Sender: FDA-Public Use
  Company Number: 2008-00489

PATIENT
  Age: 79 Year
  Sex: Female
  Weight: 63 kg

DRUGS (9)
  1. VELCADE [Suspect]
     Indication: NON-SMALL CELL LUNG CANCER
     Dosage: 2.00 MG/M2, INTRAVENOUS
     Route: 042
     Dates: start: 20080201, end: 20080208
  2. ALIMTA [Suspect]
     Indication: NON-SMALL CELL LUNG CANCER
     Dosage: 770.00 MG,  INTRAVENOUS
     Route: 042
     Dates: start: 20080201
  3. GLYBURIDE [Concomitant]
  4. GEMFIBROZIL [Concomitant]
  5. AVALIDE [Concomitant]
  6. PREVACID [Concomitant]
  7. CIPROFLOXACIN [Concomitant]
  8. AMBIEN [Concomitant]
  9. VICODIN [Concomitant]

REACTIONS (13)
  - ALANINE AMINOTRANSFERASE INCREASED [None]
  - ASPARTATE AMINOTRANSFERASE INCREASED [None]
  - BLOOD ALKALINE PHOSPHATASE INCREASED [None]
  - BLOOD GLUCOSE ABNORMAL [None]
  - FATIGUE [None]
  - FUNGAL INFECTION [None]
  - HYPOGLYCAEMIA [None]
  - LIVER FUNCTION TEST ABNORMAL [None]
  - NAUSEA [None]
  - NEUTROPENIA [None]
  - PANCYTOPENIA [None]
  - RASH [None]
  - SKIN TOXICITY [None]
